FAERS Safety Report 4876922-4 (Version None)
Quarter: 2006Q1

REPORT INFORMATION
  Report Type: 
  Country: None (occurrence: None)
  Receive Date: 20060110
  Receipt Date: 20051219
  Transmission Date: 20060701
  Serious: Yes (Hospitalization)
  Sender: FDA-Public Use
  Company Number: IT-ROCHE-429104

PATIENT
  Age: 64 Year
  Sex: Female

DRUGS (2)
  1. DACLIZUMAB [Suspect]
     Indication: LIVER TRANSPLANT
     Route: 048
     Dates: start: 20050813
  2. FK506 [Suspect]
     Indication: LIVER TRANSPLANT
     Route: 048
     Dates: start: 20050813

REACTIONS (1)
  - BILIARY ANASTOMOSIS COMPLICATION [None]
